FAERS Safety Report 5649493-2 (Version None)
Quarter: 2008Q1

REPORT INFORMATION
  Report Type: 
  Country: None (occurrence: None)
  Receive Date: 20080304
  Receipt Date: 20080221
  Transmission Date: 20080703
  Serious: Yes (Other)
  Sender: FDA-Public Use
  Company Number: US-PFIZER INC-2008017491

PATIENT
  Sex: Female
  Weight: 68.181 kg

DRUGS (8)
  1. DEPO-MEDROL [Suspect]
     Indication: MUSCULOSKELETAL PAIN
  2. PREDNISONE TAB [Concomitant]
  3. NAPROSYN [Concomitant]
  4. HYDROCODONE BITARTRATE + ACETAMINOPHEN [Concomitant]
  5. LYRICA [Concomitant]
  6. VITAMINS [Concomitant]
  7. OXYCODONE HCL [Concomitant]
  8. OPHTHALMOLOGICALS [Concomitant]

REACTIONS (4)
  - EXOSTOSIS [None]
  - OSTEOARTHRITIS [None]
  - PARAESTHESIA [None]
  - ROTATOR CUFF SYNDROME [None]
